FAERS Safety Report 5163518-2 (Version None)
Quarter: 2006Q4

REPORT INFORMATION
  Report Type: 
  Country: None (occurrence: None)
  Receive Date: 20061204
  Receipt Date: 20060803
  Transmission Date: 20070319
  Serious: Yes (Hospitalization)
  Sender: FDA-Public Use
  Company Number: 2006CG01323

PATIENT
  Age: 56 Year
  Sex: Female
  Weight: 68 kg

DRUGS (7)
  1. ARIMIDEX [Suspect]
     Indication: BREAST CANCER
     Route: 048
     Dates: start: 20040501, end: 20060630
  2. EPIRUBICIN [Concomitant]
     Indication: BREAST CANCER
     Dosage: 6 COURSES OF EPIRUBICIN RECEIVED
     Dates: start: 20040101
  3. FLUOROURACIL [Concomitant]
     Indication: BREAST CANCER
     Dosage: 6 COURSES OF 5 FU RECEIVED
     Dates: start: 20040101
  4. CYCLOPHOSPHAMIDE [Concomitant]
     Indication: BREAST CANCER
     Dosage: 6 COURSES OF CYCLOPHOSPHAMIDE RECEIVED
     Dates: start: 20040101
  5. RADIOTHERAPY [Concomitant]
     Indication: BREAST CANCER
     Dates: start: 20040501
  6. LEVOTHYROXINE SODIUM [Concomitant]
     Indication: HYPOTHYROIDISM
     Dates: start: 20050101
  7. SPASMINE [Concomitant]

REACTIONS (2)
  - ARTHRALGIA [None]
  - THROMBOCYTOPENIA [None]
